FAERS Safety Report 8226263-2 (Version None)
Quarter: 2012Q1

REPORT INFORMATION
  Report Type: 
  Country: None (occurrence: None)
  Receive Date: 20120307
  Receipt Date: 20091008
  Transmission Date: 20120608
  Serious: Yes (Other)
  Sender: FDA-Public Use
  Company Number: PHEH2009US10855

PATIENT
  Age: 75 Year
  Sex: Female
  Weight: 57.6 kg

DRUGS (5)
  1. HYDROCHLOROTHIAZIDE [Concomitant]
  2. FUROSEMIDE [Concomitant]
  3. PROTONIX [Concomitant]
  4. HYDROCODONE BITARTRATE [Concomitant]
  5. AFINITOR [Suspect]
     Indication: PANCREATIC NEUROENDOCRINE TUMOUR
     Dosage: 10 MG, QD, ORAL
     Route: 048
     Dates: start: 20090605, end: 20090609

REACTIONS (1)
  - CHEST PAIN [None]
